FAERS Safety Report 23755444 (Version 3)
Quarter: 2025Q4

REPORT INFORMATION
  Report Type: Other
  Country: EU (occurrence: EU)
  Receive Date: 20240418
  Receipt Date: 20251208
  Transmission Date: 20260117
  Serious: Yes (Other)
  Sender: BIOCON
  Company Number: EU-BIOCON BIOLOGICS LIMITED-BBL2024002245

PATIENT

DRUGS (10)
  1. TRASTUZUMAB [Suspect]
     Active Substance: TRASTUZUMAB
     Indication: Metastases to liver
     Dosage: 48 MILLIGRAM/KILOGRAM, 12 CYCLICAL
     Route: 065
  2. TRASTUZUMAB [Suspect]
     Active Substance: TRASTUZUMAB
     Indication: Adenocarcinoma gastric
  3. FLUOROURACIL [Suspect]
     Active Substance: FLUOROURACIL
     Indication: Metastases to liver
     Dosage: 6 CYCLICAL, DOSES WERE REDUCED TO 75%
     Route: 042
  4. FLUOROURACIL [Suspect]
     Active Substance: FLUOROURACIL
     Indication: Adenocarcinoma gastric
     Dosage: 2,400 MG/M2 BIWEEKLY, 6 CYCLICAL
     Route: 042
  5. OXALIPLATIN [Suspect]
     Active Substance: OXALIPLATIN
     Indication: Metastases to liver
     Dosage: 6 CYCLICAL, 85 MG/M2 BIWEEKLY
     Route: 065
  6. OXALIPLATIN [Suspect]
     Active Substance: OXALIPLATIN
     Indication: Adenocarcinoma gastric
     Dosage: DOSES WERE REDUCED TO 75%
     Route: 065
  7. DOCETAXEL [Suspect]
     Active Substance: DOCETAXEL
     Indication: Adenocarcinoma gastric
     Dosage: UNK UNK, CYCLICAL
     Route: 065
  8. DOCETAXEL [Suspect]
     Active Substance: DOCETAXEL
     Indication: Metastases to liver
     Dosage: 6 CYCLIC, 85 MG/M2 BIWEEKLY
     Route: 065
  9. LEUCOVORIN [Suspect]
     Active Substance: LEUCOVORIN\LEUCOVORIN CALCIUM
     Indication: Metastases to liver
     Dosage: 200 MG/M2 BIWEEKLY
     Route: 065
  10. LEUCOVORIN [Suspect]
     Active Substance: LEUCOVORIN\LEUCOVORIN CALCIUM
     Indication: Adenocarcinoma gastric

REACTIONS (12)
  - Ascites [Unknown]
  - Skin reaction [Unknown]
  - Haematotoxicity [Unknown]
  - Hepatic function abnormal [Recovering/Resolving]
  - Eczema [Unknown]
  - Erythema [Unknown]
  - Tumour lysis syndrome [Unknown]
  - Polyneuropathy [Not Recovered/Not Resolved]
  - Onycholysis [Unknown]
  - Onychoclasis [Not Recovered/Not Resolved]
  - Alopecia [Not Recovered/Not Resolved]
  - Paronychia [Unknown]
